FAERS Safety Report 25264363 (Version 1)
Quarter: 2025Q2

REPORT INFORMATION
  Report Type: Report from Study
  Country: US (occurrence: US)
  Receive Date: 20250502
  Receipt Date: 20250502
  Transmission Date: 20250717
  Serious: Yes (Death)
  Sender: BAYER HEALTHCARE PHARMACEUTICALS INC.
  Company Number: US-BAYER-2025A060057

PATIENT
  Sex: Male
  Weight: 82.993 kg

DRUGS (21)
  1. ADEMPAS [Suspect]
     Active Substance: RIOCIGUAT
     Indication: Pulmonary arterial hypertension
     Dates: start: 20241227
  2. ADEMPAS [Suspect]
     Active Substance: RIOCIGUAT
     Indication: Pulmonary arterial hypertension
     Dosage: 2 MG, TID
     Route: 048
  3. FUROSEMIDE [Concomitant]
     Active Substance: FUROSEMIDE
  4. ROSUVASTATIN CALCIUM [Concomitant]
     Active Substance: ROSUVASTATIN CALCIUM
  5. TAMSULOSIN HYDROCHLORIDE [Concomitant]
     Active Substance: TAMSULOSIN HYDROCHLORIDE
  6. ELIQUIS [Concomitant]
     Active Substance: APIXABAN
  7. HYDRALAZINE HCL [Concomitant]
     Active Substance: HYDRALAZINE HYDROCHLORIDE
  8. DORZOLAMIDE HYDROCHLORIDE [Concomitant]
     Active Substance: DORZOLAMIDE HYDROCHLORIDE
  9. FISH OIL\OMEGA-3 FATTY ACIDS [Concomitant]
     Active Substance: FISH OIL\OMEGA-3 FATTY ACIDS
  10. JARDIANCE [Concomitant]
     Active Substance: EMPAGLIFLOZIN
  11. FINASTERIDE [Concomitant]
     Active Substance: FINASTERIDE
  12. SEVELAMER CARBONATE [Concomitant]
     Active Substance: SEVELAMER CARBONATE
  13. METOPROLOL SUCCINATE [Concomitant]
     Active Substance: METOPROLOL SUCCINATE
  14. MAGNESIUM [Concomitant]
     Active Substance: MAGNESIUM
  15. BRIMONIDINE TARTRATE [Concomitant]
     Active Substance: BRIMONIDINE TARTRATE
  16. OXYGEN [Concomitant]
     Active Substance: OXYGEN
  17. LATANOPROST [Concomitant]
     Active Substance: LATANOPROST
  18. HUMULIN N [Concomitant]
     Active Substance: INSULIN HUMAN
  19. AMLODIPINE BESYLATE [Concomitant]
     Active Substance: AMLODIPINE BESYLATE
  20. FERROUS SULFATE [Concomitant]
     Active Substance: FERROUS SULFATE
  21. HUMULIN R [Concomitant]
     Active Substance: INSULIN HUMAN

REACTIONS (1)
  - Death [Fatal]
